FAERS Safety Report 13020707 (Version 1)
Quarter: 2016Q4

REPORT INFORMATION
  Report Type: Spontaneous
  Country: AE (occurrence: AE)
  Receive Date: 20161212
  Receipt Date: 20161212
  Transmission Date: 20170207
  Serious: Yes (Other)
  Sender: FDA-Public Use
  Company Number: AE-SA-2016SA220778

PATIENT
  Age: 30 Year
  Sex: Male

DRUGS (6)
  1. OMEPRAZOLE. [Interacting]
     Active Substance: OMEPRAZOLE
     Route: 065
  2. CHLOROQUINE. [Suspect]
     Active Substance: CHLOROQUINE
     Indication: MALARIA
     Dosage: OVER 3 DAYS
     Route: 065
  3. MEFLOQUINE [Interacting]
     Active Substance: MEFLOQUINE
     Indication: MALARIA
     Route: 065
  4. CHLORDIAZEPOXIDE/CLIDINIUM BROMIDE [Interacting]
     Active Substance: CHLORDIAZEPOXIDE\CLIDINIUM BROMIDE
     Route: 065
  5. DOMPERIDONE [Interacting]
     Active Substance: DOMPERIDONE
     Route: 065
  6. PRIMAQUINE [Interacting]
     Active Substance: PRIMAQUINE PHOSPHATE
     Indication: MALARIA
     Route: 065

REACTIONS (14)
  - Optical coherence tomography abnormal [Recovered/Resolved with Sequelae]
  - Angiogram abnormal [Recovered/Resolved with Sequelae]
  - Vomiting [Recovered/Resolved]
  - Drug interaction [Recovered/Resolved with Sequelae]
  - Diplopia [Recovered/Resolved with Sequelae]
  - Condition aggravated [Recovered/Resolved with Sequelae]
  - Fundoscopy abnormal [Recovered/Resolved with Sequelae]
  - Dizziness [Recovered/Resolved]
  - Vision blurred [Recovered/Resolved with Sequelae]
  - Visual acuity reduced [Recovered/Resolved with Sequelae]
  - Metamorphopsia [Recovered/Resolved with Sequelae]
  - Nausea [Recovered/Resolved]
  - Chorioretinopathy [Recovered/Resolved with Sequelae]
  - Macular scar [Not Recovered/Not Resolved]
